FAERS Safety Report 5946065-7 (Version None)
Quarter: 2008Q4

REPORT INFORMATION
  Report Type: 
  Country: None (occurrence: None)
  Receive Date: 20081106
  Receipt Date: 20081106
  Transmission Date: 20090506
  Serious: Yes (Hospitalization)
  Sender: FDA-Public Use
  Company Number: None

PATIENT
  Sex: Male
  Weight: 79 kg

DRUGS (2)
  1. FLUDARABINE PHOSPHATE [Suspect]
     Dosage: 250 MG
     Dates: end: 20081011
  2. RITUXIMAB (MOAHC2B8 ANTI CD2O, CHIMERIC) [Suspect]
     Dosage: 1499 MG
     Dates: end: 20081011

REACTIONS (3)
  - DIARRHOEA [None]
  - EPSTEIN-BARR VIRUS INFECTION [None]
  - RENAL FAILURE ACUTE [None]
